FAERS Safety Report 16854869 (Version 1)
Quarter: 2019Q3

REPORT INFORMATION
  Report Type: Spontaneous
  Country: US (occurrence: US)
  Receive Date: 20190805
  Receipt Date: 20190805
  Transmission Date: 20191005
  Serious: No
  Sender: FDA-Public Use
  Company Number: None

PATIENT
  Age: 43 Year
  Sex: Female

DRUGS (1)
  1. CYCLOSPORINE CAP 25MG MOD [Suspect]
     Active Substance: CYCLOSPORINE
     Dates: start: 201802

REACTIONS (3)
  - Product dose omission [None]
  - Product communication issue [None]
  - Incorrect dose administered [None]

NARRATIVE: CASE EVENT DATE: 20190805
